FAERS Safety Report 10649648 (Version 1)
Quarter: 2014Q4

REPORT INFORMATION
  Report Type: Spontaneous
  Country: US (occurrence: None)
  Receive Date: 20141205
  Receipt Date: 20141205
  Transmission Date: 20150529
  Serious: No
  Sender: FDA-Public Use
  Company Number: USA-2014111390

PATIENT
  Age: 74 Year
  Sex: Male
  Weight: 81.65 kg

DRUGS (19)
  1. COUMADIN [Concomitant]
     Active Substance: WARFARIN SODIUM
  2. ACYCLOVIR (ACICLOVIR) (ACICLOVIR) [Concomitant]
     Active Substance: ACYCLOVIR
  3. DEXAMETHASONE. [Concomitant]
     Active Substance: DEXAMETHASONE
  4. FLONASE [Concomitant]
     Active Substance: FLUTICASONE PROPIONATE
  5. VITAMIN B12 [Concomitant]
     Active Substance: CYANOCOBALAMIN
  6. POMALYST [Suspect]
     Active Substance: POMALIDOMIDE
     Indication: PLASMA CELL MYELOMA
     Dosage: 1 IN 1 D, PO
     Route: 048
     Dates: start: 20130614
  7. LANSOPRAZOLE. [Concomitant]
     Active Substance: LANSOPRAZOLE
  8. POTASSIUM [Concomitant]
     Active Substance: POTASSIUM
  9. ALENDRONATE (ALENDRONATE SODIUM) [Concomitant]
     Active Substance: ALENDRONATE SODIUM
  10. LORAZEPAM. [Concomitant]
     Active Substance: LORAZEPAM
  11. PROCRIT (ERYTHROPOIETIN) [Concomitant]
  12. VITAMIN B (VITAMIN B COMPLEX) [Concomitant]
  13. VITAMIN D (VITAMIN D NOS) [Concomitant]
  14. XGEVA [Concomitant]
     Active Substance: DENOSUMAB
  15. MULTIVITAMINS (ERGOCALCIFEROL, ASCORBIC AICD, FOLIC ACID, THIAMINE HYDROCHLORIDE, RETINOL, RIBOFLAVIN, NICOTINAMIDE, PANTHENOL) [Concomitant]
  16. CLARITHROMYCIN. [Concomitant]
     Active Substance: CLARITHROMYCIN
  17. IMODIUM [Concomitant]
     Active Substance: LOPERAMIDE HYDROCHLORIDE
  18. METOPROLOL [Concomitant]
     Active Substance: METOPROLOL
  19. TEMAZEPAM. [Concomitant]
     Active Substance: TEMAZEPAM

REACTIONS (1)
  - Gout [None]

NARRATIVE: CASE EVENT DATE: 20141101
